FAERS Safety Report 10639136 (Version 1)
Quarter: 2014Q4

REPORT INFORMATION
  Report Type: Spontaneous
  Country: US (occurrence: US)
  Receive Date: 20141208
  Receipt Date: 20141208
  Transmission Date: 20150529
  Serious: No
  Sender: FDA-Public Use
  Company Number: US-BAUSCH-SYM-2014-22568

PATIENT
  Age: 65 Year
  Sex: Male
  Weight: 83.99 kg

DRUGS (1)
  1. CARAC [Suspect]
     Active Substance: FLUOROURACIL
     Indication: SKIN CANCER
     Dates: start: 20140611

REACTIONS (6)
  - Application site erythema [Recovering/Resolving]
  - Blister [Recovering/Resolving]
  - Acne [Recovering/Resolving]
  - Application site pruritus [Recovering/Resolving]
  - Application site pain [Recovering/Resolving]
  - Application site swelling [Recovering/Resolving]
